FAERS Safety Report 5815930-3 (Version None)
Quarter: 2008Q3

REPORT INFORMATION
  Report Type: 
  Country: None (occurrence: None)
  Receive Date: 20080716
  Receipt Date: 20080612
  Transmission Date: 20090109
  Serious: Yes (Hospitalization)
  Sender: FDA-Public Use
  Company Number: 2008-179082-NL

PATIENT
  Age: 44 Year
  Sex: Female
  Weight: 46.4 kg

DRUGS (9)
  1. REMERON [Suspect]
     Indication: DRUG DEPENDENCE
     Dates: start: 20080502
  2. FIORICET [Suspect]
     Indication: MIGRAINE
     Dosage: NI, PATIENT WAS TAKING FORTY TO SIXTY TABLETS PER DAY
     Dates: end: 20080502
  3. FIORICET [Suspect]
     Indication: MULTIPLE SCLEROSIS
     Dosage: NI, PATIENT WAS TAKING FORTY TO SIXTY TABLETS PER DAY
     Dates: end: 20080502
  4. FIORICET [Suspect]
     Indication: PAIN
     Dosage: NI, PATIENT WAS TAKING FORTY TO SIXTY TABLETS PER DAY
     Dates: end: 20080502
  5. WELLBUTRIN [Suspect]
     Dosage: NI, WAS MISTAKENLY GIVEN
  6. SEROQUEL [Concomitant]
  7. CLONAZEPAM [Concomitant]
  8. VALTREX [Concomitant]
  9. ULTRAM [Concomitant]

REACTIONS (1)
  - DYSKINESIA [None]
